FAERS Safety Report 23074798 (Version 1)
Quarter: 2023Q4

REPORT INFORMATION
  Report Type: Spontaneous
  Country: GR (occurrence: GR)
  Receive Date: 20231017
  Receipt Date: 20231017
  Transmission Date: 20240110
  Serious: Yes (Hospitalization, Other)
  Sender: FDA-Public Use
  Company Number: None

PATIENT
  Age: 54 Year
  Sex: Female

DRUGS (28)
  1. CYCLOPHOSPHAMIDE [Suspect]
     Active Substance: CYCLOPHOSPHAMIDE
     Indication: Invasive ductal breast carcinoma
     Dosage: 1 DF,QCY
     Route: 065
  2. CYCLOPHOSPHAMIDE [Suspect]
     Active Substance: CYCLOPHOSPHAMIDE
     Dosage: UNK, QCYCLE
  3. ZOLEDRONIC ACID [Suspect]
     Active Substance: ZOLEDRONIC ACID
     Indication: Invasive ductal breast carcinoma
     Dosage: 1 DF,QCY
     Route: 065
     Dates: start: 2008, end: 2008
  4. ZOLEDRONIC ACID [Suspect]
     Active Substance: ZOLEDRONIC ACID
     Indication: Metastases to bone
  5. DOCETAXEL [Suspect]
     Active Substance: DOCETAXEL
     Indication: Invasive ductal breast carcinoma
     Dosage: 1 DF,QCY
     Route: 042
     Dates: start: 2008, end: 2008
  6. DOCETAXEL [Suspect]
     Active Substance: DOCETAXEL
     Indication: Metastases to bone
     Dosage: UNK UNK, QCY
     Dates: start: 2008
  7. DOCETAXEL [Suspect]
     Active Substance: DOCETAXEL
     Indication: Invasive ductal breast carcinoma
  8. CAPECITABINE [Suspect]
     Active Substance: CAPECITABINE
     Indication: Invasive ductal breast carcinoma
     Dosage: 1 DF,QCY
     Route: 042
     Dates: start: 2008, end: 2008
  9. CAPECITABINE [Suspect]
     Active Substance: CAPECITABINE
     Indication: Invasive ductal breast carcinoma
     Dosage: UNK UNK, QCY
     Dates: start: 2008
  10. GEMCITABINE HYDROCHLORIDE [Suspect]
     Active Substance: GEMCITABINE HYDROCHLORIDE
     Indication: Invasive ductal breast carcinoma
     Dosage: 1 DF,QCY
     Route: 065
     Dates: start: 2008, end: 2008
  11. GEMCITABINE HYDROCHLORIDE [Suspect]
     Active Substance: GEMCITABINE HYDROCHLORIDE
     Indication: Metastases to bone
  12. CARBOPLATIN [Suspect]
     Active Substance: CARBOPLATIN
     Indication: Invasive ductal breast carcinoma
     Dosage: 1 DF,QCY
     Route: 065
     Dates: start: 2008, end: 2008
  13. CARBOPLATIN [Suspect]
     Active Substance: CARBOPLATIN
     Indication: Metastases to bone
  14. PACLITAXEL [Suspect]
     Active Substance: PACLITAXEL
     Indication: Invasive ductal breast carcinoma
     Dosage: 1 DF,QCY
     Route: 065
     Dates: start: 2008, end: 2008
  15. BEVACIZUMAB [Suspect]
     Active Substance: BEVACIZUMAB
     Indication: Invasive ductal breast carcinoma
     Dosage: 1 DF,QCY
     Route: 065
     Dates: start: 2008, end: 2008
  16. BEVACIZUMAB [Suspect]
     Active Substance: BEVACIZUMAB
     Indication: Metastases to bone
     Dosage: UNK
  17. VINORELBINE TARTRATE [Suspect]
     Active Substance: VINORELBINE TARTRATE
     Indication: Invasive ductal breast carcinoma
     Dosage: 1 DF,QCY
     Route: 065
     Dates: start: 2008, end: 2008
  18. VINORELBINE TARTRATE [Suspect]
     Active Substance: VINORELBINE TARTRATE
     Indication: Metastases to bone
     Dosage: UNK, QCYCLE
     Dates: start: 2008
  19. DOXORUBICIN HYDROCHLORIDE [Suspect]
     Active Substance: DOXORUBICIN HYDROCHLORIDE
     Indication: Invasive ductal breast carcinoma
     Dosage: 1 DF,QCY
     Route: 065
     Dates: start: 2008, end: 2008
  20. DOXORUBICIN HYDROCHLORIDE [Suspect]
     Active Substance: DOXORUBICIN HYDROCHLORIDE
     Indication: Metastases to bone
  21. FLUOROURACIL [Suspect]
     Active Substance: FLUOROURACIL
     Indication: Invasive ductal breast carcinoma
     Dosage: 1 DF,QCY
     Route: 065
  22. ERIBULIN [Suspect]
     Active Substance: ERIBULIN
     Indication: Invasive ductal breast carcinoma
     Dosage: 1 DF,QCY
     Route: 042
     Dates: start: 2008, end: 2008
  23. ERIBULIN [Suspect]
     Active Substance: ERIBULIN
     Indication: Metastases to bone
  24. ERIBULIN [Suspect]
     Active Substance: ERIBULIN
     Indication: Metastases to bone
  25. NOVANTRONE [Suspect]
     Active Substance: MITOXANTRONE HYDROCHLORIDE
     Indication: Invasive ductal breast carcinoma
     Dosage: 1 DF,QCY
     Route: 065
  26. INIPARIB [Suspect]
     Active Substance: INIPARIB
     Indication: Invasive ductal breast carcinoma
     Dosage: UNK, QCYCLE
     Route: 042
     Dates: start: 2008, end: 2008
  27. INIPARIB [Suspect]
     Active Substance: INIPARIB
     Indication: Metastases to bone
  28. LETROZOLE [Concomitant]
     Active Substance: LETROZOLE
     Indication: Metastases to bone
     Route: 042

REACTIONS (9)
  - Disease progression [Unknown]
  - Malignant neoplasm progression [Unknown]
  - Metastases to bone marrow [Unknown]
  - Malignant neoplasm progression [Unknown]
  - Invasive ductal breast carcinoma [Unknown]
  - Anaemia [Unknown]
  - Disease progression [Unknown]
  - Thrombocytopenia [Unknown]
  - Product use in unapproved indication [Unknown]

NARRATIVE: CASE EVENT DATE: 20080101
